FAERS Safety Report 17039489 (Version 1)
Quarter: 2019Q4

REPORT INFORMATION
  Report Type: Report from Study
  Country: BR (occurrence: BR)
  Receive Date: 20191115
  Receipt Date: 20191115
  Transmission Date: 20200122
  Serious: Yes (Hospitalization, Other)
  Sender: FDA-Public Use
  Company Number: BR-SHIRE-BR201933173

PATIENT

DRUGS (1)
  1. ENDOBULIN [Suspect]
     Active Substance: HUMAN IMMUNOGLOBULIN G
     Indication: PRIMARY IMMUNODEFICIENCY SYNDROME
     Dosage: 1 GRAM PER KILOGRAM, 1X/DAY:QD
     Route: 042
     Dates: start: 20190924, end: 20190926

REACTIONS (4)
  - Dehydration [Recovering/Resolving]
  - Meningitis aseptic [Recovering/Resolving]
  - Insomnia [Recovering/Resolving]
  - Urinary tract infection [Recovering/Resolving]
